FAERS Safety Report 23204637 (Version 1)
Quarter: 2023Q4

REPORT INFORMATION
  Report Type: Spontaneous
  Country: US (occurrence: US)
  Receive Date: 20231120
  Receipt Date: 20231120
  Transmission Date: 20240109
  Serious: Yes (Hospitalization)
  Sender: FDA-Public Use
  Company Number: US-ALKERMES INC.-ALK-2023-004376

PATIENT
  Sex: Male

DRUGS (1)
  1. ARISTADA [Suspect]
     Active Substance: ARIPIPRAZOLE LAUROXIL
     Indication: Product used for unknown indication
     Dosage: 1064 MILLIGRAM, Q2MO
     Route: 030
     Dates: start: 2023

REACTIONS (2)
  - Mania [Not Recovered/Not Resolved]
  - Psychiatric decompensation [Not Recovered/Not Resolved]

NARRATIVE: CASE EVENT DATE: 20230101
